FAERS Safety Report 8152106-1 (Version None)
Quarter: 2012Q1

REPORT INFORMATION
  Report Type: 
  Country: None (occurrence: None)
  Receive Date: 20120103
  Receipt Date: 20111110
  Transmission Date: 20120608
  Serious: No
  Sender: FDA-Public Use
  Company Number: AE-2011-001883

PATIENT
  Age: 42 Year
  Sex: Female
  Weight: 54.4316 kg

DRUGS (5)
  1. IMITREX [Concomitant]
  2. RIBAVIRIN [Concomitant]
  3. PROZAC [Concomitant]
  4. INCIVEK [Suspect]
     Dosage: 2250 MG (750 MG, 1 IN 8 HR), ORAL
     Route: 048
     Dates: start: 20110923
  5. PEGASYS [Concomitant]

REACTIONS (2)
  - VOMITING [None]
  - NAUSEA [None]
